APPROVED DRUG PRODUCT: FEMSTAT 3
Active Ingredient: BUTOCONAZOLE NITRATE
Strength: 2%
Dosage Form/Route: CREAM;VAGINAL
Application: N020421 | Product #001
Applicant: BAYER HEALTHCARE LLC
Approved: Dec 21, 1995 | RLD: Yes | RS: No | Type: DISCN